FAERS Safety Report 8911865 (Version 2)
Quarter: 2013Q1

REPORT INFORMATION
  Report Type: Report from Study
  Country: US (occurrence: US)
  Receive Date: 20121115
  Receipt Date: 20130212
  Transmission Date: 20140127
  Serious: Yes (Other)
  Sender: FDA-Public Use
  Company Number: US-JNJFOC-20121106012

PATIENT
  Sex: Female
  Weight: 75.75 kg

DRUGS (2)
  1. REMICADE [Suspect]
     Indication: CROHN^S DISEASE
     Route: 042
     Dates: start: 2002, end: 2005
  2. REMICADE [Suspect]
     Indication: CROHN^S DISEASE
     Route: 042

REACTIONS (4)
  - Breast cancer [Unknown]
  - Infection [Recovered/Resolved]
  - Panel-reactive antibody [Unknown]
  - Sigmoidectomy [Unknown]
